FAERS Safety Report 16805867 (Version 8)
Quarter: 2020Q1

REPORT INFORMATION
  Report Type: Report from Study
  Country: CA (occurrence: CA)
  Receive Date: 20190913
  Receipt Date: 20200102
  Transmission Date: 20200409
  Serious: Yes (Hospitalization, Disabling, Other)
  Sender: FDA-Public Use
  Company Number: CA-BRISTOL-MYERS SQUIBB COMPANY-BMS-2019-029450

PATIENT
  Age: 76 Year
  Sex: Male
  Weight: 67.5 kg

DRUGS (3)
  1. NIVOLUMAB [Suspect]
     Active Substance: NIVOLUMAB
     Indication: MALIGNANT MELANOMA
     Dosage: 225 MILLIGRAM, Q2WK
     Route: 042
     Dates: start: 20190123
  2. RAMIPRIL. [Concomitant]
     Active Substance: RAMIPRIL
     Indication: PRODUCT USED FOR UNKNOWN INDICATION
     Dosage: UNK
     Route: 065
  3. LASIX [Concomitant]
     Active Substance: FUROSEMIDE
     Indication: PRODUCT USED FOR UNKNOWN INDICATION
     Dosage: UNK, 5 DAYS
     Route: 065

REACTIONS (28)
  - Diarrhoea haemorrhagic [Recovered/Resolved]
  - Fatigue [Recovered/Resolved]
  - Polyuria [Unknown]
  - Insomnia [Unknown]
  - Gastrointestinal disorder [Recovering/Resolving]
  - Appetite disorder [Recovered/Resolved]
  - Dizziness [Recovered/Resolved]
  - Weight decreased [Recovering/Resolving]
  - Pain [Recovered/Resolved]
  - Asthenia [Recovering/Resolving]
  - Weight increased [Recovered/Resolved]
  - Hypokalaemia [Recovering/Resolving]
  - Dyspnoea [Recovered/Resolved]
  - Infusion related reaction [Unknown]
  - Dehydration [Recovering/Resolving]
  - Somnolence [Recovered/Resolved]
  - Anxiety [Unknown]
  - Oedema peripheral [Unknown]
  - Thermal burn [Recovering/Resolving]
  - Hypotension [Recovered/Resolved]
  - Contusion [Unknown]
  - Diarrhoea [Recovered/Resolved]
  - Gastroenteritis viral [Recovering/Resolving]
  - Pneumonia [Unknown]
  - Fall [Recovering/Resolving]
  - Muscle strain [Recovering/Resolving]
  - Back pain [Recovered/Resolved]
  - Nausea [Recovered/Resolved]

NARRATIVE: CASE EVENT DATE: 20190320
